FAERS Safety Report 12249904 (Version 2)
Quarter: 2016Q2

REPORT INFORMATION
  Report Type: Report from Study
  Country: TR (occurrence: TR)
  Receive Date: 20160408
  Receipt Date: 20160502
  Transmission Date: 20160815
  Serious: Yes (Death, Life-Threatening)
  Sender: FDA-Public Use
  Company Number: TR-009507513-1604TUR004699

PATIENT
  Age: 70 Year
  Sex: Male

DRUGS (1)
  1. PEMBROLIZUMAB. [Suspect]
     Active Substance: PEMBROLIZUMAB
     Indication: MALIGNANT MELANOMA
     Dosage: 2 MG/KG, Q3W, (3 CYCLES)
     Route: 042
     Dates: start: 20160112, end: 20160223

REACTIONS (1)
  - Malignant neoplasm progression [Fatal]

NARRATIVE: CASE EVENT DATE: 20160309
